FAERS Safety Report 7103151-6 (Version None)
Quarter: 2010Q4

REPORT INFORMATION
  Report Type: 
  Country: None (occurrence: None)
  Receive Date: 20101115
  Receipt Date: 20080515
  Transmission Date: 20110411
  Serious: No
  Sender: FDA-Public Use
  Company Number: US-KINGPHARMUSA00001-K200800563

PATIENT
  Sex: Male
  Weight: 85.261 kg

DRUGS (5)
  1. AVINZA [Suspect]
     Indication: PAIN
     Dosage: 30 MG, QD
     Route: 048
     Dates: start: 20080515
  2. LOVASTATIN [Concomitant]
  3. TIOTROPIUM [Concomitant]
  4. LISINOPRIL [Concomitant]
  5. ASPIRIN [Concomitant]
     Dosage: 81 MG, QD

REACTIONS (1)
  - DYSPNOEA [None]
